FAERS Safety Report 16781400 (Version 7)
Quarter: 2020Q3

REPORT INFORMATION
  Report Type: Report from Study
  Country: US (occurrence: US)
  Receive Date: 20190906
  Receipt Date: 20200805
  Transmission Date: 20201102
  Serious: Yes (Life-Threatening, Hospitalization, Other)
  Sender: FDA-Public Use
  Company Number: US-SA-2019SA240808

PATIENT

DRUGS (3)
  1. ALEMTUZUMAB [Suspect]
     Active Substance: ALEMTUZUMAB
     Indication: MULTIPLE SCLEROSIS
     Dosage: 12 MG, QD
     Route: 041
     Dates: start: 20190824, end: 20190825
  2. ALEMTUZUMAB [Suspect]
     Active Substance: ALEMTUZUMAB
     Dosage: 12 MG, QD
     Route: 041
     Dates: start: 20180820, end: 20180824
  3. ALEMTUZUMAB [Suspect]
     Active Substance: ALEMTUZUMAB
     Dosage: 6 MG, QD
     Route: 041
     Dates: start: 20190826, end: 20190827

REACTIONS (17)
  - Immune system disorder [Unknown]
  - Pleural effusion [Unknown]
  - Tachycardia [Recovered/Resolved]
  - Wheezing [Recovered/Resolved]
  - Dyspnoea [Recovered/Resolved]
  - Hypertension [Recovered/Resolved]
  - Inappropriate schedule of product administration [Unknown]
  - Incorrect dose administered [Recovered/Resolved]
  - Lymphocyte count decreased [Unknown]
  - Respiratory distress [Recovered/Resolved]
  - Haemothorax [Unknown]
  - Throat irritation [Recovered/Resolved]
  - Respiratory rate increased [Unknown]
  - Cough [Recovered/Resolved]
  - Respiratory failure [Unknown]
  - Urine protein/creatinine ratio abnormal [Unknown]
  - Infusion site pruritus [Recovered/Resolved]

NARRATIVE: CASE EVENT DATE: 201908
